FAERS Safety Report 12547089 (Version 4)
Quarter: 2016Q4

REPORT INFORMATION
  Report Type: Spontaneous
  Country: US (occurrence: US)
  Receive Date: 20160711
  Receipt Date: 20161019
  Transmission Date: 20170207
  Serious: Yes (Other)
  Sender: FDA-Public Use
  Company Number: US-TEVA-675449USA

PATIENT
  Age: 30 Year
  Sex: Female

DRUGS (2)
  1. ZECUITY [Suspect]
     Active Substance: SUMATRIPTAN SUCCINATE
     Route: 062
     Dates: start: 201606, end: 201606
  2. BOTOX [Concomitant]
     Active Substance: ONABOTULINUMTOXINA
     Route: 065

REACTIONS (7)
  - Application site scab [Recovering/Resolving]
  - Application site inflammation [Unknown]
  - Application site rash [Recovered/Resolved]
  - Application site scar [Recovered/Resolved]
  - Application site erythema [Unknown]
  - Application site discolouration [Recovering/Resolving]
  - Application site burn [Recovering/Resolving]

NARRATIVE: CASE EVENT DATE: 201606
